FAERS Safety Report 11128512 (Version 1)
Quarter: 2015Q2

REPORT INFORMATION
  Report Type: Spontaneous
  Country: US (occurrence: None)
  Receive Date: 20150520
  Receipt Date: 20150520
  Transmission Date: 20150821
  Serious: No
  Sender: FDA-Public Use
  Company Number: None

PATIENT
  Age: 48 Year
  Sex: Male

DRUGS (9)
  1. ONABOLULINUMTOINA (BOTOX) [Concomitant]
  2. LIORESAL [Concomitant]
     Active Substance: BACLOFEN
  3. DANTROLENE (DANTRIUM) [Concomitant]
  4. AMANLADINE (SYMMETHREL) [Concomitant]
  5. CPDR SR CAP [Concomitant]
  6. NUVIGIL [Concomitant]
     Active Substance: ARMODAFINIL
  7. TECFIDERA [Concomitant]
     Active Substance: DIMETHYL FUMARATE
  8. AMPYRA [Suspect]
     Active Substance: DALFAMPRIDINE
     Indication: MULTIPLE SCLEROSIS
     Route: 048
     Dates: start: 201008
  9. CALCIUM + D [Concomitant]
     Active Substance: CALCIUM\VITAMIN D

REACTIONS (2)
  - Full blood count abnormal [None]
  - Urine analysis abnormal [None]

NARRATIVE: CASE EVENT DATE: 20150118
